FAERS Safety Report 4960786-4 (Version None)
Quarter: 2006Q2

REPORT INFORMATION
  Report Type: 
  Country: None (occurrence: None)
  Receive Date: 20060403
  Receipt Date: 20050928
  Transmission Date: 20061013
  Serious: Yes (Death, Hospitalization)
  Sender: FDA-Public Use
  Company Number: US-MERCK-0509USA04943

PATIENT
  Age: 79 Year
  Sex: Female

DRUGS (10)
  1. VIOXX [Suspect]
     Indication: ARTHRITIS
     Route: 048
     Dates: start: 20030601, end: 20040601
  2. DEPAKOTE [Concomitant]
     Route: 065
  3. NORVASC [Concomitant]
     Route: 065
  4. LIPITOR [Concomitant]
     Route: 065
  5. METOPROLOL [Concomitant]
     Route: 065
  6. ACTONEL [Concomitant]
     Route: 065
  7. NITROQUICK [Concomitant]
     Route: 065
  8. PLAVIX [Concomitant]
     Route: 065
  9. ALTACE [Concomitant]
     Route: 065
  10. ISOSORBIDE MONONITRATE [Concomitant]
     Route: 065

REACTIONS (6)
  - ARTHROPATHY [None]
  - CARDIAC ARREST [None]
  - CARDIAC DISORDER [None]
  - CHEST PAIN [None]
  - CONVULSION [None]
  - INTESTINAL FUNCTIONAL DISORDER [None]
